FAERS Safety Report 17884126 (Version 2)
Quarter: 2020Q3

REPORT INFORMATION
  Report Type: Spontaneous
  Country: US (occurrence: US)
  Receive Date: 20200611
  Receipt Date: 20200723
  Transmission Date: 20201103
  Serious: Yes (Life-Threatening, Hospitalization)
  Sender: FDA-Public Use
  Company Number: US-MYLANLABS-2020M1054845

PATIENT
  Sex: Female
  Weight: 102.8 kg

DRUGS (5)
  1. SERTRALINE [Concomitant]
     Active Substance: SERTRALINE HYDROCHLORIDE
     Route: 065
  2. LITHIUM. [Suspect]
     Active Substance: LITHIUM
     Indication: BIPOLAR DISORDER
     Dosage: 300 MILLIGRAM, QD, FOR MORE THAN 10 YEARS
     Route: 048
     Dates: end: 201905
  3. TOPIRAMATE. [Concomitant]
     Active Substance: TOPIRAMATE
     Route: 065
  4. LORAZEPAM. [Concomitant]
     Active Substance: LORAZEPAM
     Route: 065
  5. ESZOPICLONE. [Concomitant]
     Active Substance: ESZOPICLONE
     Route: 065

REACTIONS (9)
  - Metabolic encephalopathy [Unknown]
  - Hypothyroidism [Recovered/Resolved]
  - Sinus tachycardia [Recovered/Resolved]
  - Toxicity to various agents [Recovering/Resolving]
  - Acute motor-sensory axonal neuropathy [Recovered/Resolved]
  - Condition aggravated [Recovered/Resolved]
  - Pneumonia [Recovered/Resolved]
  - Product communication issue [Recovering/Resolving]
  - Respiratory failure [Recovering/Resolving]
